FAERS Safety Report 5298490-8 (Version None)
Quarter: 2007Q2

REPORT INFORMATION
  Report Type: 
  Country: None (occurrence: None)
  Receive Date: 20070409
  Receipt Date: 20070321
  Transmission Date: 20071010
  Serious: Yes (Hospitalization)
  Sender: FDA-Public Use
  Company Number: ALK_0151_2007

PATIENT
  Age: 43 Year
  Sex: Male

DRUGS (3)
  1. VIVITROL [Suspect]
     Dosage: 380 MG QM IM
     Route: 030
     Dates: start: 20060928, end: 20061220
  2. CHANTIX [Concomitant]
  3. WELLBUTRIN XL [Concomitant]

REACTIONS (32)
  - ABNORMAL DREAMS [None]
  - ACUTE RESPIRATORY DISTRESS SYNDROME [None]
  - ACUTE RESPIRATORY FAILURE [None]
  - ANTINUCLEAR ANTIBODY POSITIVE [None]
  - BACTERIA URINE [None]
  - BLOOD BILIRUBIN INCREASED [None]
  - BRONCHIOLITIS [None]
  - CHILLS [None]
  - DECREASED INTEREST [None]
  - EOSINOPHILIC PNEUMONIA [None]
  - FATIGUE [None]
  - HYPERGLYCAEMIA [None]
  - HYPERSENSITIVITY [None]
  - HYPOVOLAEMIA [None]
  - INFLUENZA [None]
  - INFLUENZA SEROLOGY POSITIVE [None]
  - INJECTION SITE PAIN [None]
  - LIBIDO DECREASED [None]
  - LUNG INFILTRATION [None]
  - MYCOPLASMA SEROLOGY POSITIVE [None]
  - PNEUMONIA [None]
  - PNEUMONITIS [None]
  - PROTEIN URINE PRESENT [None]
  - RENAL FAILURE ACUTE [None]
  - RESPIRATORY DISORDER [None]
  - RESPIRATORY SYNCYTIAL VIRUS INFECTION [None]
  - SEPSIS [None]
  - SINUSITIS [None]
  - TINNITUS [None]
  - URINE KETONE BODY PRESENT [None]
  - VIRAL INFECTION [None]
  - VIRAL TEST POSITIVE [None]
